FAERS Safety Report 7634951-1 (Version None)
Quarter: 2011Q3

REPORT INFORMATION
  Report Type: 
  Country: None (occurrence: None)
  Receive Date: 20110726
  Receipt Date: 20110718
  Transmission Date: 20111222
  Serious: Yes (Other)
  Sender: FDA-Public Use
  Company Number: US-BAYER-201038491NA

PATIENT
  Age: 30 Year
  Sex: Female
  Weight: 43.084 kg

DRUGS (1)
  1. YAZ [Suspect]
     Indication: ACNE
     Dosage: UNK
     Route: 048
     Dates: start: 20070401, end: 20080301

REACTIONS (3)
  - GALLBLADDER DISORDER [None]
  - PAIN [None]
  - MIGRAINE [None]
